FAERS Safety Report 18024609 (Version 5)
Quarter: 2022Q4

REPORT INFORMATION
  Report Type: Report from Study
  Country: US (occurrence: US)
  Receive Date: 20200714
  Receipt Date: 20221207
  Transmission Date: 20230112
  Serious: Yes (Hospitalization, Other)
  Sender: FDA-Public Use
  Company Number: US-BRISTOL-MYERS SQUIBB COMPANY-BMS-2020-055084

PATIENT
  Age: 58 Year
  Sex: Male
  Weight: 103.2 kg

DRUGS (4)
  1. NIVOLUMAB [Suspect]
     Active Substance: NIVOLUMAB
     Indication: Penile squamous cell carcinoma
     Dosage: 304.2 MILLIGRAM
     Route: 042
     Dates: start: 20200513, end: 20200610
  2. IPILIMUMAB [Suspect]
     Active Substance: IPILIMUMAB
     Indication: Penile squamous cell carcinoma
     Dosage: 101.4 MILLIGRAM
     Route: 042
     Dates: start: 20200513, end: 20200610
  3. CABOZANTINIB [Suspect]
     Active Substance: CABOZANTINIB
     Indication: Penile squamous cell carcinoma
     Dosage: 320 MILLIGRAM
     Route: 048
     Dates: start: 20200513, end: 20200618
  4. CABOZANTINIB [Suspect]
     Active Substance: CABOZANTINIB
     Route: 048
     Dates: start: 20201007, end: 20201015

REACTIONS (4)
  - Diverticulitis [Recovered/Resolved with Sequelae]
  - Colitis [Recovering/Resolving]
  - Acute kidney injury [Recovered/Resolved]
  - Soft tissue infection [Not Recovered/Not Resolved]

NARRATIVE: CASE EVENT DATE: 20200623
